FAERS Safety Report 5356093-0 (Version None)
Quarter: 2007Q2

REPORT INFORMATION
  Report Type: 
  Country: None (occurrence: None)
  Receive Date: 20070613
  Receipt Date: 20070530
  Transmission Date: 20071010
  Serious: Yes (Hospitalization)
  Sender: FDA-Public Use
  Company Number: GB-ELI_LILLY_AND_COMPANY-GB200703003036

PATIENT
  Age: 15 Year
  Sex: Male
  Weight: 51 kg

DRUGS (5)
  1. STRATTERA [Suspect]
     Indication: ATTENTION DEFICIT/HYPERACTIVITY DISORDER
     Dosage: 40 MG, DAILY (1/D)
     Route: 048
     Dates: start: 20060120, end: 20060901
  2. STRATTERA [Suspect]
     Dosage: 40 MG, DAILY (1/D)
     Route: 048
     Dates: start: 20061001, end: 20061117
  3. ALCOHOL [Concomitant]
  4. BENZODIAZEPINE DERIVATIVES [Concomitant]
  5. METHYLPHENIDATE HCL [Concomitant]

REACTIONS (7)
  - ALCOHOLISM [None]
  - DRUG ABUSER [None]
  - DYSPEPSIA [None]
  - FLATULENCE [None]
  - JOINT INJURY [None]
  - ROAD TRAFFIC ACCIDENT [None]
  - VOMITING [None]
